FAERS Safety Report 21218490 (Version 1)
Quarter: 2022Q3

REPORT INFORMATION
  Report Type: Spontaneous
  Country: AU (occurrence: AU)
  Receive Date: 20220816
  Receipt Date: 20220816
  Transmission Date: 20221027
  Serious: Yes (Hospitalization, Disabling, Other)
  Sender: FDA-Public Use
  Company Number: AU-MYLANLABS-2022M1086282

PATIENT
  Age: 35 Year
  Sex: Male

DRUGS (1)
  1. ALLOPURINOL [Suspect]
     Active Substance: ALLOPURINOL
     Indication: Product used for unknown indication
     Dosage: UNK
     Route: 065

REACTIONS (4)
  - SJS-TEN overlap [Recovering/Resolving]
  - Visual impairment [Not Recovered/Not Resolved]
  - Ulcerative keratitis [Not Recovered/Not Resolved]
  - Dry eye [Not Recovered/Not Resolved]
